FAERS Safety Report 7216870-8 (Version None)
Quarter: 2010Q4

REPORT INFORMATION
  Report Type: 
  Country: None (occurrence: None)
  Receive Date: 20101230
  Receipt Date: 20101222
  Transmission Date: 20110411
  Serious: Yes (Death, Hospitalization)
  Sender: FDA-Public Use
  Company Number: 2010EU002537

PATIENT
  Age: 62 Year
  Sex: Male

DRUGS (11)
  1. PROGRAF [Suspect]
     Indication: RENAL TRANSPLANT
     Dosage: 0.5 MG, BID, ORAL; 1 MG, BID,; 0.5 MG, BID,
     Route: 048
     Dates: start: 20060301
  2. PROGRAF [Suspect]
     Indication: RENAL TRANSPLANT
     Dosage: 0.5 MG, BID, ORAL; 1 MG, BID,; 0.5 MG, BID,
     Route: 048
     Dates: start: 20100407
  3. PROGRAF [Suspect]
     Indication: RENAL TRANSPLANT
     Dosage: 0.5 MG, BID, ORAL; 1 MG, BID,; 0.5 MG, BID,
     Route: 048
     Dates: start: 20100415
  4. SANDIMMUNE [Suspect]
     Indication: RENAL TRANSPLANT
     Dosage: 200 MG, BID, ORAL
     Route: 048
     Dates: start: 19960101, end: 20060101
  5. AMLOBETA (AMLODIPINE MESILATE) [Concomitant]
  6. CLONIDINE HCL [Concomitant]
  7. METOHEXAL (METOPROLOL TARTRATE) [Concomitant]
  8. BENAZEPRIL HYDROCHLORIDE [Concomitant]
  9. BENZBROMARONE (BENZBROMARONE) [Concomitant]
  10. TRIAMTEREN COMP (HYDROCHLOROTHIAZIDE, TRIAMTERENE) [Concomitant]
  11. FLUVASTATIN SODIUM [Concomitant]

REACTIONS (15)
  - ADENOCARCINOMA [None]
  - ALANINE AMINOTRANSFERASE INCREASED [None]
  - ASPARTATE AMINOTRANSFERASE INCREASED [None]
  - CHLAMYDIA TEST POSITIVE [None]
  - CYTOMEGALOVIRUS TEST POSITIVE [None]
  - DIARRHOEA [None]
  - ENTEROCOCCUS TEST POSITIVE [None]
  - FUNGAL TEST POSITIVE [None]
  - GAMMA-GLUTAMYLTRANSFERASE INCREASED [None]
  - HERPES ZOSTER [None]
  - HYPERURICAEMIA [None]
  - METASTASES TO LYMPH NODES [None]
  - PNEUMONIA [None]
  - RESPIRATORY FAILURE [None]
  - STENOTROPHOMONAS TEST POSITIVE [None]
